FAERS Safety Report 7879889 (Version 6)
Quarter: 2013Q1

REPORT INFORMATION
  Report Type: Report from Study
  Country: HU (occurrence: HU)
  Receive Date: 20110331
  Receipt Date: 20130228
  Transmission Date: 20140127
  Serious: Yes (Hospitalization)
  Sender: FDA-Public Use
  Company Number: HU-BRISTOL-MYERS SQUIBB COMPANY-15639537

PATIENT
  Age: 58 Year
  Sex: Male
  Weight: 55 kg

DRUGS (3)
  1. CETUXIMAB [Suspect]
     Indication: HEAD AND NECK CANCER
     Dosage: MOST RECENT DOSE ON 20DEC2010,?STRENGTH=5MG/ML?NO OF INF:19
     Route: 042
     Dates: start: 20100816, end: 20101220
  2. CISPLATIN FOR INJ [Suspect]
     Indication: HEAD AND NECK CANCER
     Dosage: MOST RECENT DOSE ON 13DEC2010,?NO OF INFUSIONS=6
     Route: 042
     Dates: start: 20100816
  3. 5-FLUOROURACIL [Suspect]
     Indication: HEAD AND NECK CANCER
     Dosage: MOST RECENT DOSE ON 17DEC2010,?NO OF INFUSIONS=6, ?CONT INFUSION FROM DAY1 TO DAY 4 OF CYCLE
     Route: 042
     Dates: start: 20100816

REACTIONS (2)
  - Phlebitis [Not Recovered/Not Resolved]
  - Dehydration [Recovered/Resolved]
